FAERS Safety Report 23724608 (Version 1)
Quarter: 2024Q2

REPORT INFORMATION
  Report Type: Spontaneous
  Country: US (occurrence: US)
  Receive Date: 20240409
  Receipt Date: 20240409
  Transmission Date: 20240715
  Serious: Yes (Other)
  Sender: FDA-Public Use
  Company Number: US-FOUNDATIONCONSUMERHC-2023-US-038975

PATIENT
  Age: 34 Year
  Sex: Female
  Weight: 52.16 kg

DRUGS (1)
  1. TAKE ACTION [Suspect]
     Active Substance: LEVONORGESTREL
     Indication: Post coital contraception
     Dosage: TAKE 1 TABLET WITHIN 72 HOURS OF UPI.
     Route: 048
     Dates: start: 20231029, end: 20231029

REACTIONS (2)
  - Pregnancy after post coital contraception [Unknown]
  - Drug ineffective [Unknown]

NARRATIVE: CASE EVENT DATE: 20231029
